FAERS Safety Report 9723300 (Version 6)
Quarter: 2014Q3

REPORT INFORMATION
  Report Type: Report from Study
  Country: US (occurrence: US)
  Receive Date: 20131202
  Receipt Date: 20140827
  Transmission Date: 20150326
  Serious: Yes (Hospitalization)
  Sender: FDA-Public Use
  Company Number: US-BAYER-2013-141348

PATIENT
  Age: 61 Year
  Sex: Female
  Weight: 57.2 kg

DRUGS (11)
  1. REGORAFENIB [Suspect]
     Active Substance: REGORAFENIB
     Indication: ANAL CANCER STAGE IV
     Dosage: 160 MG DAILY
     Route: 048
     Dates: start: 20131014, end: 20131111
  2. CLONAZEPAM. [Concomitant]
     Active Substance: CLONAZEPAM
     Indication: INSOMNIA
     Dosage: 1 MG, BID PRN
     Route: 048
     Dates: start: 20130903
  3. MORPHINE [Concomitant]
     Active Substance: MORPHINE
     Indication: ARTHRALGIA
     Dosage: 15 MG, QD
     Route: 048
     Dates: start: 20131014, end: 20131014
  4. AMBIEN [Concomitant]
     Active Substance: ZOLPIDEM TARTRATE
     Indication: INSOMNIA
     Dosage: 5 MG, QD PRN
     Route: 048
     Dates: start: 20130402
  5. METHADONE [Concomitant]
     Active Substance: METHADONE HYDROCHLORIDE
     Indication: ABDOMINAL PAIN
     Dosage: 5 MG, 1 TAB 2 TIMES A DAY
     Route: 048
     Dates: start: 20130725, end: 20131031
  6. MORPHINE [Concomitant]
     Active Substance: MORPHINE
     Indication: BACK PAIN
     Dosage: 15 MG, 2 TABLETS ONCE
     Route: 048
     Dates: start: 20131014, end: 20131014
  7. CIPRO [Concomitant]
     Active Substance: CIPROFLOXACIN HYDROCHLORIDE
     Indication: PROPHYLAXIS URINARY TRACT INFECTION
     Dosage: 500 MG, QD
     Route: 048
     Dates: start: 20131031, end: 20131104
  8. METHADONE [Concomitant]
     Active Substance: METHADONE HYDROCHLORIDE
     Indication: ABDOMINAL PAIN
     Dosage: 5 MG, 1 TAB MORNING AND AFTERNOON
     Dates: start: 20131031
  9. MORPHINE [Concomitant]
     Active Substance: MORPHINE
     Indication: ABDOMINAL PAIN
     Dosage: 15 MG 2-3 TABS AS NEEDED
     Route: 048
     Dates: start: 20131101
  10. OXYCODONE [Concomitant]
     Active Substance: OXYCODONE
     Indication: HEADACHE
     Dosage: UNK
     Route: 065
     Dates: start: 20131016, end: 20131016
  11. MIRTAZAPINE. [Concomitant]
     Active Substance: MIRTAZAPINE
     Indication: INSOMNIA
     Dosage: 15 MG, 2 TABS ONCE A DAY
     Route: 048
     Dates: start: 20130903

REACTIONS (1)
  - Stress cardiomyopathy [Recovered/Resolved with Sequelae]

NARRATIVE: CASE EVENT DATE: 20131113
